FAERS Safety Report 23267014 (Version 1)
Quarter: 2023Q4

REPORT INFORMATION
  Report Type: Spontaneous
  Country: CA (occurrence: CA)
  Receive Date: 20231206
  Receipt Date: 20231206
  Transmission Date: 20240110
  Serious: Yes (Life-Threatening, Hospitalization, Other)
  Sender: FDA-Public Use
  Company Number: CA-GLAXOSMITHKLINE-CA2023AMR169859

PATIENT

DRUGS (1)
  1. BENLYSTA [Suspect]
     Active Substance: BELIMUMAB
     Indication: Systemic lupus erythematosus
     Dosage: 640 MG, Q4W (1 EVERY 4 WEEKS)
     Route: 042

REACTIONS (6)
  - Anxiety [Unknown]
  - Arterial occlusive disease [Unknown]
  - Chest pain [Unknown]
  - Dyspepsia [Unknown]
  - Hyperhidrosis [Unknown]
  - Myocardial infarction [Unknown]
